FAERS Safety Report 19519104 (Version 4)
Quarter: 2021Q3

REPORT INFORMATION
  Report Type: Spontaneous
  Country: JP (occurrence: JP)
  Receive Date: 20210712
  Receipt Date: 20210727
  Transmission Date: 20211014
  Serious: Yes (Hospitalization)
  Sender: FDA-Public Use
  Company Number: JP-JNJFOC-20210708492

PATIENT
  Age: 49 Year
  Sex: Male

DRUGS (10)
  1. RISPERDAL [Suspect]
     Active Substance: RISPERIDONE
     Indication: SCHIZOPHRENIA
     Route: 048
     Dates: end: 20210624
  2. OLANZAPINE. [Suspect]
     Active Substance: OLANZAPINE
     Route: 048
     Dates: start: 20210625, end: 202107
  3. LEVOTOMIN [LEVOMEPROMAZINE MALEATE] [Suspect]
     Active Substance: LEVOMEPROMAZINE
     Route: 065
     Dates: start: 20210626
  4. INVEGA [Suspect]
     Active Substance: PALIPERIDONE
     Indication: SCHIZOPHRENIA
     Route: 048
     Dates: start: 20210626, end: 20210627
  5. OLANZAPINE. [Suspect]
     Active Substance: OLANZAPINE
     Route: 048
     Dates: start: 202107
  6. SERENACE [Suspect]
     Active Substance: HALOPERIDOL
     Indication: PRODUCT USED FOR UNKNOWN INDICATION
     Route: 065
     Dates: start: 20210624
  7. LONASEN [Suspect]
     Active Substance: BLONANSERIN
     Route: 062
     Dates: start: 20210625
  8. OLANZAPINE. [Suspect]
     Active Substance: OLANZAPINE
     Route: 048
     Dates: start: 202107, end: 202107
  9. DANTROLENE SODIUM HYDRATE [Concomitant]
     Active Substance: DANTROLENE SODIUM
     Dosage: DOSE UNKNOWN
     Route: 065
     Dates: start: 20210627
  10. CERCINE [Concomitant]
     Active Substance: DIAZEPAM
     Dosage: DOSE UNKNOWN
     Route: 065
     Dates: start: 202107

REACTIONS (4)
  - Neuroleptic malignant syndrome [Recovering/Resolving]
  - Confusional state [Unknown]
  - Dehydration [Unknown]
  - Cardiac disorder [Unknown]

NARRATIVE: CASE EVENT DATE: 20210624
